FAERS Safety Report 8910913 (Version 2)
Quarter: 2012Q4

REPORT INFORMATION
  Report Type: 
  Country: US (occurrence: US)
  Receive Date: 20121115
  Receipt Date: 20121203
  Transmission Date: 20130627
  Serious: Yes (Other)
  Sender: FDA-Public Use
  Company Number: US-ELI_LILLY_AND_COMPANY-US201211002075

PATIENT
  Sex: Female

DRUGS (1)
  1. FORTEO [Suspect]
     Indication: OSTEOPOROSIS
     Dosage: 20 ug, qd
     Route: 058
     Dates: start: 20120125

REACTIONS (6)
  - Hysterectomy [Unknown]
  - Bladder disorder [Unknown]
  - Functional gastrointestinal disorder [Unknown]
  - Palpitations [Unknown]
  - Abdominal pain lower [Unknown]
  - Surgery [Unknown]
